FAERS Safety Report 4596030-X (Version None)
Quarter: 2005Q1

REPORT INFORMATION
  Report Type: 
  Country: None (occurrence: None)
  Receive Date: 20050224
  Receipt Date: 20050209
  Transmission Date: 20050727
  Serious: Yes (Disabling)
  Sender: FDA-Public Use
  Company Number: 2005EU000258

PATIENT
  Age: 37 Year
  Sex: Male

DRUGS (3)
  1. PROGRAF [Suspect]
     Indication: RENAL TRANSPLANT
     Dosage: 1.00 MG
     Dates: start: 20030101
  2. PREDNISONE TAB [Concomitant]
  3. ZYTRIM ^KLINGE PHARMA^ [Concomitant]

REACTIONS (2)
  - MACULAR OEDEMA [None]
  - RETINAL VASCULITIS [None]
